FAERS Safety Report 10237849 (Version 2)
Quarter: 2014Q2

REPORT INFORMATION
  Report Type: Spontaneous
  Country: AR (occurrence: AR)
  Receive Date: 20140616
  Receipt Date: 20140626
  Transmission Date: 20141212
  Serious: Yes (Hospitalization)
  Sender: FDA-Public Use
  Company Number: AR-BIOGENIDEC-2014BI056393

PATIENT
  Age: 14 Year
  Sex: Female

DRUGS (2)
  1. AVONEX [Suspect]
     Indication: MULTIPLE SCLEROSIS
     Route: 030
     Dates: start: 201208
  2. CLOBAZAM [Concomitant]

REACTIONS (5)
  - Loss of consciousness [Recovered/Resolved]
  - Mouth haemorrhage [Recovered/Resolved]
  - Headache [Recovered/Resolved]
  - Chills [Unknown]
  - Myalgia [Unknown]
